FAERS Safety Report 6836558-2 (Version None)
Quarter: 2010Q3

REPORT INFORMATION
  Report Type: 
  Country: None (occurrence: None)
  Receive Date: 20100713
  Receipt Date: 20100707
  Transmission Date: 20110219
  Serious: Yes (Other)
  Sender: FDA-Public Use
  Company Number: CHPA2010US11249

PATIENT
  Sex: Female

DRUGS (1)
  1. GAS-X EXTRA STRENGTH (NCH) [Suspect]
     Indication: GASTROPTOSIS
     Dosage: UNK,UNK
     Route: 048
     Dates: start: 20080101

REACTIONS (2)
  - HEPATIC FUNCTION ABNORMAL [None]
  - OFF LABEL USE [None]
